FAERS Safety Report 25158300 (Version 2)
Quarter: 2025Q2

REPORT INFORMATION
  Report Type: Spontaneous
  Country: US (occurrence: US)
  Receive Date: 20250404
  Receipt Date: 20250528
  Transmission Date: 20250716
  Serious: No
  Sender: BIOGEN
  Company Number: US-BIOGEN-2024BI01250832

PATIENT
  Age: 81 Year
  Sex: Female

DRUGS (3)
  1. VUMERITY [Suspect]
     Active Substance: DIROXIMEL FUMARATE
     Indication: Multiple sclerosis
     Dosage: STARTING DOSE
     Route: 050
     Dates: start: 20230112, end: 20230121
  2. VUMERITY [Suspect]
     Active Substance: DIROXIMEL FUMARATE
     Dosage: MAINTENANCE DOSE
     Route: 050
     Dates: start: 20230114, end: 20250217
  3. VUMERITY [Suspect]
     Active Substance: DIROXIMEL FUMARATE
     Dosage: FOR 7 DAYS AND THEN 2 - 231MG CAPSULES BY MOUTH TWICE A DAY
     Route: 050
     Dates: start: 20250520

REACTIONS (3)
  - Blood pressure increased [Not Recovered/Not Resolved]
  - Flushing [Unknown]
  - Diarrhoea [Unknown]

NARRATIVE: CASE EVENT DATE: 20250520
